FAERS Safety Report 5946548-X (Version None)
Quarter: 2008Q4

REPORT INFORMATION
  Report Type: 
  Country: None (occurrence: None)
  Receive Date: 20081110
  Receipt Date: 20081031
  Transmission Date: 20090506
  Serious: Yes (Other)
  Sender: FDA-Public Use
  Company Number: B0545449A

PATIENT
  Sex: Male

DRUGS (3)
  1. EPIVIR [Suspect]
     Indication: HIV INFECTION
     Dates: start: 20040614, end: 20041213
  2. ZIAGEN [Suspect]
     Indication: HIV INFECTION
     Dates: start: 20040614, end: 20041213
  3. COMBIVIR [Concomitant]
     Dates: start: 20041213

REACTIONS (1)
  - HEPATOTOXICITY [None]
